FAERS Safety Report 4775888-5 (Version None)
Quarter: 2005Q3

REPORT INFORMATION
  Report Type: 
  Country: None (occurrence: None)
  Receive Date: 20050922
  Receipt Date: 20050915
  Transmission Date: 20060218
  Serious: Yes (Hospitalization)
  Sender: FDA-Public Use
  Company Number: US-MERCK-0509USA02326

PATIENT
  Age: 76 Year
  Sex: Male
  Weight: 78 kg

DRUGS (2)
  1. VIOXX [Suspect]
     Indication: OSTEOPOROSIS
     Route: 048
     Dates: start: 20000706, end: 20040920
  2. ASPIRIN [Concomitant]
     Route: 065

REACTIONS (3)
  - ARTHROPATHY [None]
  - HIP ARTHROPLASTY [None]
  - MYOCARDIAL INFARCTION [None]
